FAERS Safety Report 9364031 (Version 1)
Quarter: 2013Q2

REPORT INFORMATION
  Report Type: Spontaneous
  Country: DK (occurrence: None)
  Receive Date: 20130620
  Receipt Date: 20130620
  Transmission Date: 20140414
  Serious: Yes (Disabling, Other)
  Sender: FDA-Public Use
  Company Number: DK-20130002

PATIENT
  Sex: Female

DRUGS (2)
  1. DOTAREM [Suspect]
     Indication: PRODUCT USED FOR UNKNOWN INDICATION
     Dosage: 40 ML (40 M, 1-2)
     Dates: start: 200305, end: 200305
  2. OMNISCAN (GADODIAMIDE) [Suspect]
     Indication: PRODUCT USED FOR UNKNOWN INDICATION
     Dates: start: 200110

REACTIONS (1)
  - Nephrogenic systemic fibrosis [None]
